FAERS Safety Report 10094682 (Version 1)
Quarter: 2014Q2

REPORT INFORMATION
  Report Type: Spontaneous
  Country: US (occurrence: None)
  Receive Date: 20140418
  Receipt Date: 20140418
  Transmission Date: 20141212
  Serious: Yes (Hospitalization, Other)
  Sender: FDA-Public Use
  Company Number: US-ZYDUS-003054

PATIENT
  Age: 65 Year
  Sex: Female

DRUGS (2)
  1. WARFARIN [Suspect]
     Indication: ANTICOAGULANT THERAPY
  2. VALPROATE SEMISODIUM [Suspect]
     Indication: HEADACHE

REACTIONS (4)
  - Cardiac failure [None]
  - Drug interaction [None]
  - International normalised ratio increased [None]
  - Therapy cessation [None]
